FAERS Safety Report 8265353-5 (Version None)
Quarter: 2012Q2

REPORT INFORMATION
  Report Type: 
  Country: None (occurrence: None)
  Receive Date: 20120403
  Receipt Date: 20120321
  Transmission Date: 20120825
  Serious: Yes (Hospitalization)
  Sender: FDA-Public Use
  Company Number: AUR-APL-2012-01602

PATIENT
  Age: 61 Year
  Sex: Female

DRUGS (6)
  1. LORAZEPAM [Suspect]
     Indication: PRODUCT USED FOR UNKNOWN INDICATION
     Dosage: (20 DOSAGE FORMS), ORAL
     Route: 048
     Dates: start: 20120307, end: 20120307
  2. CLONAZEPAM [Concomitant]
  3. PAROXETINE HCL [Suspect]
     Indication: PRODUCT USED FOR UNKNOWN INDICATION
     Dosage: (520 MG, TOTAL), ORAL
     Route: 048
  4. ZOLOFT [Suspect]
     Indication: PRODUCT USED FOR UNKNOWN INDICATION
     Dosage: (15 DOSAGE FORMS), ORAL
     Route: 048
     Dates: start: 20120307, end: 20120307
  5. ZOLPIDEM TARTRATE [Suspect]
     Indication: PRODUCT USED FOR UNKNOWN INDICATION
     Dosage: (15 DOSAGE FORMS), ORAL
     Route: 048
     Dates: start: 20120307, end: 20120307
  6. CARDIOSAPIRIN (ACETYLSALICYLIC ACID) [Concomitant]

REACTIONS (5)
  - BRADYPHRENIA [None]
  - HYPOKINESIA [None]
  - INTENTIONAL OVERDOSE [None]
  - SUICIDE ATTEMPT [None]
  - BRADYKINESIA [None]
